APPROVED DRUG PRODUCT: BUTALBITAL, ACETAMINOPHEN AND CAFFEINE
Active Ingredient: ACETAMINOPHEN; BUTALBITAL; CAFFEINE
Strength: 300MG;50MG;40MG
Dosage Form/Route: CAPSULE;ORAL
Application: A215135 | Product #001
Applicant: HIKMA PHARMACEUTICALS USA INC
Approved: Mar 25, 2022 | RLD: No | RS: No | Type: DISCN